FAERS Safety Report 15167642 (Version 1)
Quarter: 2018Q3

REPORT INFORMATION
  Report Type: Spontaneous
  Country: FR (occurrence: FR)
  Receive Date: 20180719
  Receipt Date: 20180719
  Transmission Date: 20181010
  Serious: Yes (Hospitalization)
  Sender: FDA-Public Use
  Company Number: FR-009507513-1807FRA004796

PATIENT
  Age: 76 Year
  Sex: Female
  Weight: 97.8 kg

DRUGS (9)
  1. LOSARTAN POTASSIUM. [Suspect]
     Active Substance: LOSARTAN POTASSIUM
     Route: 048
     Dates: end: 20170915
  2. MAGNE B6 SOLUTION [Concomitant]
     Route: 048
  3. NOLVADEX [Concomitant]
     Active Substance: TAMOXIFEN CITRATE
     Route: 048
  4. VELITEN [Concomitant]
     Active Substance: ASCORBIC ACID\CHYMOTRYPSIN\RUTIN\TOCOPHEROL
     Route: 048
  5. DIAMICRON [Concomitant]
     Active Substance: GLICLAZIDE
     Route: 048
  6. SPIRONOLACTONE. [Suspect]
     Active Substance: SPIRONOLACTONE
     Indication: HYPERTENSION
     Route: 048
     Dates: end: 20170915
  7. ALFACALCIDOL [Concomitant]
     Active Substance: ALFACALCIDOL
     Route: 048
  8. ALTHIAZIDE [Suspect]
     Active Substance: ALTHIAZIDE
     Indication: HYPERTENSION
     Route: 048
     Dates: end: 20170915
  9. EUTHYRAL [Concomitant]
     Active Substance: LEVOTHYROXINE SODIUM\LIOTHYRONINE SODIUM
     Route: 048

REACTIONS (2)
  - Acute kidney injury [Recovered/Resolved]
  - Sepsis [Recovered/Resolved]

NARRATIVE: CASE EVENT DATE: 20170915
